FAERS Safety Report 21749579 (Version 1)
Quarter: 2022Q4

REPORT INFORMATION
  Report Type: Spontaneous
  Country: US (occurrence: None)
  Receive Date: 20221217
  Receipt Date: 20221217
  Transmission Date: 20230113
  Serious: No
  Sender: FDA-Public Use
  Company Number: None

PATIENT
  Age: 67 Year
  Sex: Male
  Weight: 137.8 kg

DRUGS (24)
  1. WELIREG [Suspect]
     Active Substance: BELZUTIFAN
     Indication: Renal cancer
     Dosage: FREQUENCY : DAILY;?
     Route: 048
  2. ADVAIR DISKUS [Concomitant]
  3. EDOXAN [Concomitant]
  4. ESCITALOPRAM [Concomitant]
  5. OXALATE [Concomitant]
  6. GLYBURIDE [Concomitant]
     Active Substance: GLYBURIDE
  7. ASPIRIN [Concomitant]
  8. ISOSORBIDE [Concomitant]
  9. LASIX [Concomitant]
  10. LEVOTHYROXINE [Concomitant]
  11. LISINOPRIL [Concomitant]
  12. MAGIC MOUTHWASH [Concomitant]
  13. MAGOX [Concomitant]
  14. METFORMIN [Concomitant]
     Active Substance: METFORMIN HYDROCHLORIDE
  15. NITROSTAT [Concomitant]
  16. NORVASC [Concomitant]
  17. OXYCODONE [Concomitant]
  18. POTASSIUM CHLORIDE [Concomitant]
  19. PROMETHAZINE [Concomitant]
  20. ROPINIROLE [Concomitant]
  21. ROSUVASTATIN [Concomitant]
  22. TRAZODONE [Concomitant]
  23. XANAX [Concomitant]
  24. ZOFRAN [Concomitant]

REACTIONS (2)
  - Red blood cell count decreased [None]
  - Pericardial effusion [None]
